FAERS Safety Report 10952901 (Version 1)
Quarter: 2015Q1

REPORT INFORMATION
  Report Type: Spontaneous
  Country: VN (occurrence: VN)
  Receive Date: 20150325
  Receipt Date: 20150325
  Transmission Date: 20150721
  Serious: Yes (Other)
  Sender: FDA-Public Use
  Company Number: VN-ASTELLAS-2015US009659

PATIENT
  Age: 49 Year
  Sex: Female

DRUGS (1)
  1. ERLOTINIB [Suspect]
     Active Substance: ERLOTINIB
     Indication: LUNG NEOPLASM MALIGNANT
     Route: 048
     Dates: start: 201109, end: 201211

REACTIONS (7)
  - Drug resistance [Unknown]
  - White blood cell count decreased [Unknown]
  - Lung neoplasm malignant [Unknown]
  - Platelet count decreased [Unknown]
  - Rash [Recovered/Resolved]
  - Red blood cell count decreased [Unknown]
  - Neutropenia [Unknown]

NARRATIVE: CASE EVENT DATE: 201211
